FAERS Safety Report 4846443-3 (Version None)
Quarter: 2005Q4

REPORT INFORMATION
  Report Type: 
  Country: None (occurrence: None)
  Receive Date: 20051202
  Receipt Date: 20051121
  Transmission Date: 20060501
  Serious: Yes (Other)
  Sender: FDA-Public Use
  Company Number: 2005159572

PATIENT
  Sex: Female

DRUGS (1)
  1. CELEBREX [Suspect]
     Indication: ARTHRITIS
     Dosage: 200 MG

REACTIONS (5)
  - ARTHRITIS [None]
  - CARDIAC VALVE DISEASE [None]
  - CORONARY ARTERY OCCLUSION [None]
  - HEART VALVE REPLACEMENT [None]
  - PAIN [None]
